FAERS Safety Report 20612390 (Version 2)
Quarter: 2022Q3

REPORT INFORMATION
  Report Type: Spontaneous
  Country: US (occurrence: None)
  Receive Date: 20220318
  Receipt Date: 20220831
  Transmission Date: 20221026
  Serious: Yes (Other)
  Sender: FDA-Public Use
  Company Number: 2022A112287

PATIENT
  Age: 62 Year
  Sex: Female
  Weight: 70.3 kg

DRUGS (68)
  1. NEXIUM 24HR [Suspect]
     Active Substance: ESOMEPRAZOLE MAGNESIUM
     Indication: Gastrooesophageal reflux disease
     Route: 048
     Dates: start: 2003, end: 2018
  2. NEXIUM 24HR [Suspect]
     Active Substance: ESOMEPRAZOLE MAGNESIUM
     Indication: Gastrooesophageal reflux disease
     Route: 048
     Dates: start: 2003, end: 2018
  3. NEXIUM 24HR [Suspect]
     Active Substance: ESOMEPRAZOLE MAGNESIUM
     Indication: Gastrooesophageal reflux disease
     Route: 048
     Dates: start: 2014, end: 2018
  4. NEXIUM 24HR [Suspect]
     Active Substance: ESOMEPRAZOLE MAGNESIUM
     Indication: Gastrooesophageal reflux disease
     Route: 048
     Dates: start: 2014, end: 2018
  5. NEXIUM [Suspect]
     Active Substance: ESOMEPRAZOLE MAGNESIUM
     Indication: Gastrooesophageal reflux disease
     Route: 048
     Dates: start: 2001, end: 2018
  6. NEXIUM [Suspect]
     Active Substance: ESOMEPRAZOLE MAGNESIUM
     Indication: Gastrooesophageal reflux disease
     Route: 048
     Dates: start: 2001, end: 2018
  7. PRILOSEC OTC [Suspect]
     Active Substance: OMEPRAZOLE MAGNESIUM
     Indication: Gastrooesophageal reflux disease
     Route: 048
     Dates: start: 2003, end: 2018
  8. PRILOSEC OTC [Suspect]
     Active Substance: OMEPRAZOLE MAGNESIUM
     Indication: Gastrooesophageal reflux disease
     Route: 048
     Dates: start: 2003, end: 2018
  9. PREVACID 24 HR [Suspect]
     Active Substance: LANSOPRAZOLE
     Indication: Gastrooesophageal reflux disease
     Route: 065
     Dates: start: 2003, end: 2018
  10. PREVACID 24 HR [Suspect]
     Active Substance: LANSOPRAZOLE
     Indication: Gastrooesophageal reflux disease
     Route: 065
     Dates: start: 2003, end: 2018
  11. PREVACID 24 HR [Suspect]
     Active Substance: LANSOPRAZOLE
     Indication: Gastrooesophageal reflux disease
     Route: 065
     Dates: start: 2009, end: 2018
  12. PREVACID 24 HR [Suspect]
     Active Substance: LANSOPRAZOLE
     Indication: Gastrooesophageal reflux disease
     Route: 065
     Dates: start: 2009, end: 2018
  13. PROTONIX [Suspect]
     Active Substance: PANTOPRAZOLE SODIUM
     Indication: Gastrooesophageal reflux disease
     Route: 065
     Dates: start: 2003, end: 2018
  14. PROTONIX [Suspect]
     Active Substance: PANTOPRAZOLE SODIUM
     Indication: Gastrooesophageal reflux disease
     Route: 065
     Dates: start: 2003, end: 2018
  15. PROTONIX [Suspect]
     Active Substance: PANTOPRAZOLE SODIUM
     Indication: Gastrooesophageal reflux disease
     Route: 065
     Dates: start: 2013
  16. PROTONIX [Suspect]
     Active Substance: PANTOPRAZOLE SODIUM
     Indication: Gastrooesophageal reflux disease
     Route: 065
     Dates: start: 2013
  17. PREVACID [Suspect]
     Active Substance: LANSOPRAZOLE
     Indication: Gastrooesophageal reflux disease
     Route: 065
     Dates: start: 1995, end: 2018
  18. PREVACID [Suspect]
     Active Substance: LANSOPRAZOLE
     Indication: Gastrooesophageal reflux disease
     Route: 065
     Dates: start: 1995, end: 2018
  19. TRAMADOL [Concomitant]
     Active Substance: TRAMADOL
     Indication: Pain
     Dates: start: 201802
  20. TRAMADOL [Concomitant]
     Active Substance: TRAMADOL
     Indication: Pain
     Dates: start: 201812
  21. AMOXICILLIN [Concomitant]
     Active Substance: AMOXICILLIN
     Indication: Infection
     Dates: start: 201403
  22. AMOXICILLIN [Concomitant]
     Active Substance: AMOXICILLIN
     Indication: Infection
     Dates: start: 201810
  23. AMOXICILLIN [Concomitant]
     Active Substance: AMOXICILLIN
     Indication: Infection
     Dates: start: 201903
  24. ERYTHROMYCIN [Concomitant]
     Active Substance: ERYTHROMYCIN
     Indication: Infection
     Dates: start: 201209
  25. ERYTHROMYCIN [Concomitant]
     Active Substance: ERYTHROMYCIN
     Indication: Infection
     Dates: start: 201306
  26. ERYTHROMYCIN [Concomitant]
     Active Substance: ERYTHROMYCIN
     Indication: Infection
     Dates: start: 201312
  27. ERYTHROMYCIN [Concomitant]
     Active Substance: ERYTHROMYCIN
     Indication: Infection
     Dates: start: 201402
  28. ERYTHROMYCIN [Concomitant]
     Active Substance: ERYTHROMYCIN
     Indication: Infection
     Dates: start: 201403
  29. ERYTHROMYCIN [Concomitant]
     Active Substance: ERYTHROMYCIN
     Indication: Infection
     Dates: start: 201408
  30. ERYTHROMYCIN [Concomitant]
     Active Substance: ERYTHROMYCIN
     Indication: Infection
     Dates: start: 201408
  31. ERYTHROMYCIN [Concomitant]
     Active Substance: ERYTHROMYCIN
     Indication: Infection
     Dates: start: 201501
  32. ERYTHROMYCIN [Concomitant]
     Active Substance: ERYTHROMYCIN
     Indication: Infection
     Dates: start: 201601
  33. ERYTHROMYCIN [Concomitant]
     Active Substance: ERYTHROMYCIN
     Indication: Infection
     Dates: start: 201604
  34. TRIMETHOPRIM [Concomitant]
     Active Substance: TRIMETHOPRIM
     Indication: Infection
     Dates: start: 201801
  35. BACTRIM [Concomitant]
     Active Substance: SULFAMETHOXAZOLE\TRIMETHOPRIM
     Indication: Infection
     Dates: start: 201801
  36. LISINOPRIL [Concomitant]
     Active Substance: LISINOPRIL
     Indication: Blood pressure measurement
     Dates: start: 201604
  37. LISINOPRIL [Concomitant]
     Active Substance: LISINOPRIL
     Indication: Blood pressure measurement
     Dates: start: 201706
  38. PRINIVIL [Concomitant]
     Active Substance: LISINOPRIL
     Indication: Blood pressure measurement
     Dates: start: 201710
  39. PRINIVIL [Concomitant]
     Active Substance: LISINOPRIL
     Indication: Blood pressure measurement
     Dates: start: 201905
  40. PRINIVIL [Concomitant]
     Active Substance: LISINOPRIL
     Indication: Blood pressure measurement
     Dates: start: 202103
  41. FUROSEMIDE [Concomitant]
     Active Substance: FUROSEMIDE
     Indication: Renal injury
     Dates: start: 2019
  42. ATORVASTATIN [Concomitant]
     Active Substance: ATORVASTATIN
     Indication: Blood cholesterol
     Dates: start: 201809, end: 2019
  43. LOVASTATIN [Concomitant]
     Active Substance: LOVASTATIN
     Indication: Blood cholesterol
     Dates: start: 201604
  44. LOVASTATIN [Concomitant]
     Active Substance: LOVASTATIN
     Indication: Blood cholesterol
     Dates: start: 2017
  45. MEVACOR [Concomitant]
     Active Substance: LOVASTATIN
     Indication: Blood cholesterol
     Dates: start: 2017
  46. VITAMINS [Concomitant]
     Active Substance: VITAMINS
  47. FISH OIL [Concomitant]
     Active Substance: FISH OIL
     Indication: Cardiac disorder
  48. ACETAMINOPHEN [Concomitant]
     Active Substance: ACETAMINOPHEN
  49. FAMOTIDINE [Concomitant]
     Active Substance: FAMOTIDINE
     Dates: start: 201806, end: 2019
  50. PEPCID [Concomitant]
     Active Substance: FAMOTIDINE
     Dates: start: 201809
  51. CITALOPRAM [Concomitant]
     Active Substance: CITALOPRAM HYDROBROMIDE
  52. LEVOTHYROXINE [Concomitant]
     Active Substance: LEVOTHYROXINE
  53. PANTOPRAZOLE [Concomitant]
     Active Substance: PANTOPRAZOLE
  54. TRAZODONE [Concomitant]
     Active Substance: TRAZODONE HYDROCHLORIDE
  55. CIPROFLOXACIN [Concomitant]
     Active Substance: CIPROFLOXACIN
  56. PREDNISONE [Concomitant]
     Active Substance: PREDNISONE
  57. BUSPIRONE [Concomitant]
     Active Substance: BUSPIRONE HYDROCHLORIDE
  58. TRILYTE [Concomitant]
     Active Substance: POLYETHYLENE GLYCOL 3350\POTASSIUM CHLORIDE\SODIUM BICARBONATE\SODIUM CHLORIDE
  59. METOPROLOL TARTRATE [Concomitant]
     Active Substance: METOPROLOL TARTRATE
  60. ALBUTEROL [Concomitant]
     Active Substance: ALBUTEROL
  61. BECLOMETHASONE [Concomitant]
     Active Substance: BECLOMETHASONE
  62. PROAIR HFA [Concomitant]
     Active Substance: ALBUTEROL SULFATE
  63. GABAPENTIN [Concomitant]
     Active Substance: GABAPENTIN
  64. CYCLOBENZAPRINE [Concomitant]
     Active Substance: CYCLOBENZAPRINE
  65. TAMSULOSIN HYDROCHLORIDE [Concomitant]
     Active Substance: TAMSULOSIN HYDROCHLORIDE
  66. VOLTAREN [Concomitant]
     Active Substance: DICLOFENAC SODIUM
  67. OXYBUTYNIN [Concomitant]
     Active Substance: OXYBUTYNIN
  68. FENOFIBRATE [Concomitant]
     Active Substance: FENOFIBRATE

REACTIONS (3)
  - Chronic kidney disease [Not Recovered/Not Resolved]
  - Renal failure [Unknown]
  - Gastrooesophageal reflux disease [Not Recovered/Not Resolved]

NARRATIVE: CASE EVENT DATE: 20180101
